FAERS Safety Report 17553954 (Version 1)
Quarter: 2020Q1

REPORT INFORMATION
  Report Type: Spontaneous
  Country: FR (occurrence: FR)
  Receive Date: 20200318
  Receipt Date: 20200318
  Transmission Date: 20200409
  Serious: Yes (Other)
  Sender: FDA-Public Use
  Company Number: FR-AUROBINDO-AUR-APL-2020-013223

PATIENT
  Age: 44 Year
  Sex: Female
  Weight: 72 kg

DRUGS (8)
  1. DI-HYDAN [Suspect]
     Active Substance: PHENYTOIN
     Indication: GENERALISED TONIC-CLONIC SEIZURE
     Dosage: 300 MILLIGRAM, ONCE A DAY
     Route: 048
     Dates: start: 20191223, end: 20191229
  2. CORVASAL (MOLSIDOMINE) [Suspect]
     Active Substance: MOLSIDOMINE
     Indication: VASOSPASM
     Dosage: UNK
     Route: 048
     Dates: start: 20191223, end: 20191226
  3. MUCOMYST [Suspect]
     Active Substance: ACETYLCYSTEINE
     Indication: PRODUCT USED FOR UNKNOWN INDICATION
     Dosage: UNK
     Route: 048
     Dates: start: 20191223, end: 20191230
  4. DIFFU K [Suspect]
     Active Substance: POTASSIUM CHLORIDE
     Indication: HYPOKALAEMIA
     Dosage: UNK
     Route: 048
     Dates: start: 20191224, end: 20191226
  5. NIMOTOP [Suspect]
     Active Substance: NIMODIPINE
     Indication: VASOSPASM
     Dosage: UNK
     Route: 065
     Dates: start: 20191223, end: 20191226
  6. ACUPAN [Suspect]
     Active Substance: NEFOPAM HYDROCHLORIDE
     Indication: ANALGESIC INTERVENTION SUPPORTIVE THERAPY
     Dosage: UNK
     Route: 065
     Dates: start: 20191223, end: 20191230
  7. PARACETAMOL [Suspect]
     Active Substance: ACETAMINOPHEN
     Indication: ANALGESIC INTERVENTION SUPPORTIVE THERAPY
     Dosage: UNK
     Route: 048
     Dates: start: 20191223, end: 20191230
  8. ACTISKENAN [Suspect]
     Active Substance: MORPHINE SULFATE
     Indication: ANALGESIC INTERVENTION SUPPORTIVE THERAPY
     Dosage: UNK
     Route: 048
     Dates: start: 20191223, end: 20191230

REACTIONS (5)
  - Eosinophil count increased [Recovered/Resolved]
  - Rash maculo-papular [Recovering/Resolving]
  - Pyrexia [Recovered/Resolved]
  - Liver injury [Not Recovered/Not Resolved]
  - Band neutrophil count increased [Recovered/Resolved]

NARRATIVE: CASE EVENT DATE: 20191223
